FAERS Safety Report 5537244-1 (Version None)
Quarter: 2007Q4

REPORT INFORMATION
  Report Type: 
  Country: None (occurrence: None)
  Receive Date: 20071207
  Receipt Date: 20071129
  Transmission Date: 20080405
  Serious: Yes (Death, Hospitalization)
  Sender: FDA-Public Use
  Company Number: FR-AVENTIS-200713519FR

PATIENT
  Age: 72 Year
  Sex: Male

DRUGS (6)
  1. RIFADIN [Suspect]
     Indication: BACTERIAL INFECTION
     Route: 048
     Dates: start: 20070904, end: 20071016
  2. TILDIEM [Suspect]
     Indication: DRUG USE FOR UNKNOWN INDICATION
     Route: 048
     Dates: start: 20070920, end: 20071017
  3. RIMIFON [Suspect]
     Indication: BACTERIAL INFECTION
     Route: 048
     Dates: start: 20070904, end: 20071016
  4. IZILOX [Suspect]
     Indication: BACTERIAL INFECTION
     Route: 048
     Dates: start: 20070907, end: 20071014
  5. BURINEX [Suspect]
     Indication: DRUG USE FOR UNKNOWN INDICATION
     Route: 048
     Dates: start: 20070830
  6. ASPEGIC 1000 [Concomitant]
     Indication: MYOCARDIAL INFARCTION
     Route: 048
     Dates: start: 19990101

REACTIONS (3)
  - CUTANEOUS VASCULITIS [None]
  - DEATH [None]
  - TOXIC SKIN ERUPTION [None]
